FAERS Safety Report 6389846-0 (Version None)
Quarter: 2009Q4

REPORT INFORMATION
  Report Type: 
  Country: None (occurrence: None)
  Receive Date: 20091006
  Receipt Date: 20081003
  Transmission Date: 20100525
  Serious: No
  Sender: FDA-Public Use
  Company Number: US-BRISTOL-MYERS SQUIBB COMPANY-14357412

PATIENT

DRUGS (1)
  1. AVAPRO [Suspect]
     Dosage: 1 DF - 300MG AVAPRO TABS

REACTIONS (1)
  - ACCIDENTAL OVERDOSE [None]
